FAERS Safety Report 8621625-3 (Version None)
Quarter: 2012Q3

REPORT INFORMATION
  Report Type: 
  Country: None (occurrence: None)
  Receive Date: 20120820
  Receipt Date: 20120820
  Transmission Date: 20120928
  Serious: Yes (Life-Threatening)
  Sender: FDA-Public Use
  Company Number: None

PATIENT
  Age: 65 Year
  Sex: Female
  Weight: 92.4 kg

DRUGS (20)
  1. BISACODYL [Concomitant]
  2. FENTANYL [Concomitant]
  3. HYDROMORPHONE HCL [Concomitant]
  4. ONDANSETRON [Concomitant]
  5. DOCUSATE [Concomitant]
  6. METOCLOPRAMIDE [Concomitant]
  7. WARFARIN SODIUM [Concomitant]
  8. CEFAZOLIN [Concomitant]
  9. PROMETHAZINE [Concomitant]
  10. FLUTICASONE AND SALMETEROL [Concomitant]
  11. MORPHINE [Concomitant]
  12. RIVAROXABAN 10 MG JANSSEN PHARMACEUTICALS [Suspect]
     Dates: start: 20120414, end: 20120415
  13. CELECOXIB [Concomitant]
  14. MULTIVTAMIN WITH MINERALS [Concomitant]
  15. ACETAMINOPHEN AND HYDROCODONE [Concomitant]
  16. DILTIAZEM [Concomitant]
  17. ENOXAPARIN [Concomitant]
  18. OXYCODONE HCL [Concomitant]
  19. PANTOPRAZOLE [Concomitant]
  20. DOCUSATE-SENNA [Concomitant]

REACTIONS (1)
  - PULMONARY EMBOLISM [None]
